FAERS Safety Report 25766919 (Version 1)
Quarter: 2025Q3

REPORT INFORMATION
  Report Type: Spontaneous
  Country: US (occurrence: US)
  Receive Date: 20250905
  Receipt Date: 20250905
  Transmission Date: 20251021
  Serious: No
  Sender: CHATTEM
  Company Number: US-OPELLA-2025OHG026588

PATIENT
  Age: 62 Year
  Sex: Female

DRUGS (6)
  1. FEXOFENADINE [Suspect]
     Active Substance: FEXOFENADINE HYDROCHLORIDE
     Indication: Food allergy
  2. METOPROLOL [Concomitant]
     Active Substance: METOPROLOL
     Indication: Food allergy
  3. FAMOTIDINE [Concomitant]
     Active Substance: FAMOTIDINE
     Indication: Food allergy
  4. KETOTIFEN [Concomitant]
     Active Substance: KETOTIFEN
     Indication: Food allergy
  5. PREDNISONE [Concomitant]
     Active Substance: PREDNISONE
     Indication: Food allergy
  6. EPIPEN [Concomitant]
     Active Substance: EPINEPHRINE
     Indication: Food allergy

REACTIONS (2)
  - Off label use [Unknown]
  - No adverse event [Unknown]
